FAERS Safety Report 9604311 (Version 3)
Quarter: 2014Q1

REPORT INFORMATION
  Report Type: Report from Study
  Country: CA (occurrence: CA)
  Receive Date: 20131008
  Receipt Date: 20140127
  Transmission Date: 20141002
  Serious: Yes (Death, Hospitalization)
  Sender: FDA-Public Use
  Company Number: PHHY2013CA112205

PATIENT
  Sex: Female

DRUGS (3)
  1. CLOZARIL [Suspect]
     Dosage: UNK
     Dates: start: 20050218
  2. EPIVAL [Concomitant]
     Dosage: UNK UKN, UNK
  3. RISPERDAL [Concomitant]
     Dosage: UNK UKN, UNK

REACTIONS (3)
  - Infective exacerbation of chronic obstructive airways disease [Fatal]
  - Chronic obstructive pulmonary disease [Fatal]
  - Pneumonia [Fatal]
